FAERS Safety Report 8807933 (Version 1)
Quarter: 2012Q4

REPORT INFORMATION
  Report Type: 
  Country: US (occurrence: US)
  Receive Date: 20120925
  Receipt Date: 20120925
  Transmission Date: 20130627
  Serious: Yes (Death, Other)
  Sender: FDA-Public Use
  Company Number: US-ROCHE-1094358

PATIENT
  Sex: Female

DRUGS (1)
  1. AVASTIN [Suspect]
     Indication: ANAL CANCER

REACTIONS (3)
  - Malaise [Unknown]
  - Multi-organ failure [Unknown]
  - Neoplasm malignant [Fatal]
